FAERS Safety Report 7959890-8 (Version None)
Quarter: 2011Q4

REPORT INFORMATION
  Report Type: 
  Country: None (occurrence: None)
  Receive Date: 20111206
  Receipt Date: 20111128
  Transmission Date: 20120403
  Serious: Yes (Other)
  Sender: FDA-Public Use
  Company Number: PHHY2011IN104092

PATIENT

DRUGS (6)
  1. OFLOXACIN [Suspect]
     Indication: TUBERCULOSIS
     Dosage: UNK
  2. CYCLOSERINE [Suspect]
     Indication: TUBERCULOSIS
  3. KANAMYCIN [Concomitant]
     Indication: TUBERCULOSIS
  4. ETHAMBUTOL HYDROCHLORIDE [Suspect]
     Indication: TUBERCULOSIS
  5. PYRAZINAMIDE [Concomitant]
     Indication: TUBERCULOSIS
  6. ETHIONAMIDE [Suspect]
     Indication: TUBERCULOSIS

REACTIONS (14)
  - PERSECUTORY DELUSION [None]
  - HALLUCINATION, VISUAL [None]
  - ABNORMAL BEHAVIOUR [None]
  - DECREASED APPETITE [None]
  - HALLUCINATION, AUDITORY [None]
  - FEAR [None]
  - JUDGEMENT IMPAIRED [None]
  - ANXIETY [None]
  - SOMNOLENCE [None]
  - PSYCHOMOTOR SKILLS IMPAIRED [None]
  - DELUSION [None]
  - DELUSION OF REFERENCE [None]
  - PALLOR [None]
  - BREATH SOUNDS ABNORMAL [None]
